FAERS Safety Report 7655171-0 (Version None)
Quarter: 2011Q3

REPORT INFORMATION
  Report Type: 
  Country: None (occurrence: None)
  Receive Date: 20110804
  Receipt Date: 20110802
  Transmission Date: 20111222
  Serious: No
  Sender: FDA-Public Use
  Company Number: US-PFIZER INC-2011176508

PATIENT
  Sex: Female
  Weight: 70.748 kg

DRUGS (6)
  1. MAXALT [Concomitant]
     Dosage: UNK
  2. ZALEPLON [Concomitant]
     Dosage: UNK
  3. DROSPIRENONE AND ETHINYL ESTRADIOL [Concomitant]
     Indication: CONTRACEPTION
     Dosage: UNK
  4. CHANTIX [Suspect]
     Dosage: 1 MG, 2X/DAY
     Route: 048
     Dates: start: 20110701
  5. CHANTIX [Suspect]
     Indication: SMOKING CESSATION THERAPY
     Dosage: 0.5 MG, 1X/DAY
     Route: 048
     Dates: start: 20110719, end: 20110701
  6. AMBIEN [Concomitant]
     Dosage: UNK

REACTIONS (1)
  - NAUSEA [None]
